FAERS Safety Report 9481621 (Version 1)
Quarter: 2013Q3

REPORT INFORMATION
  Report Type: Spontaneous
  Country: US (occurrence: US)
  Receive Date: 20130828
  Receipt Date: 20130828
  Transmission Date: 20140515
  Serious: Yes (Hospitalization)
  Sender: FDA-Public Use
  Company Number: US-AMGEN-KDL182186

PATIENT
  Age: 70 Year
  Sex: Male

DRUGS (2)
  1. ENBREL [Suspect]
     Indication: RHEUMATOID ARTHRITIS
     Dosage: 50 MG, QWK
     Route: 058
     Dates: start: 20060426
  2. ANTIBIOTICS [Concomitant]
     Dosage: UNK UNK, UNK

REACTIONS (4)
  - Gastric perforation [Unknown]
  - Haematochezia [Unknown]
  - Helicobacter infection [Unknown]
  - Injection site bruising [Not Recovered/Not Resolved]
